FAERS Safety Report 10331767 (Version 1)
Quarter: 2014Q3

REPORT INFORMATION
  Report Type: Spontaneous
  Country: JP (occurrence: None)
  Receive Date: 20140718
  Receipt Date: 20140718
  Transmission Date: 20150326
  Serious: Yes (Other)
  Sender: FDA-Public Use
  Company Number: 2014JP00804

PATIENT
  Age: 72 Year
  Sex: Male

DRUGS (4)
  1. EXTERNAL-BEAM RADIOTHERAPY (EBRT) [Suspect]
     Active Substance: RADIATION THERAPY
     Indication: PANCREATIC CARCINOMA
     Dosage: 2 GY/DAY IN 15 FRACTIONS, FIVE TIMES PER WEEK
  2. KOCHI OXYDOL-RADIATION THERAPY FOR UNRESECTABLE CARCINOMAS-KORTUC-IOR (KOCHI OXYDOL-RADIATION THERAPY FOR UNRESECTABLE CARCINOMAS-KORTUC-IORT) [Suspect]
     Active Substance: HYALURONATE SODIUM\HYDROGEN PEROXIDE
     Indication: PANCREATIC CARCINOMA
  3. GEMCITABINE (GEMCITABINE) INJECTION [Suspect]
     Active Substance: GEMCITABINE HYDROCHLORIDE
     Indication: PANCREATIC CARCINOMA
     Dosage: 300 MG/BODY WEIGHT ONCE PER WEEK
  4. TS-1 [Suspect]
     Active Substance: GIMERACIL\OTERACIL POTASSIUM\TEGAFUR
     Indication: PANCREATIC CARCINOMA
     Dosage: 80-100 MG/DAY FOR 28 DAYS TWICE DAILY

REACTIONS (1)
  - Disease progression [None]
